FAERS Safety Report 4808551-2 (Version None)
Quarter: 2005Q4

REPORT INFORMATION
  Report Type: 
  Country: None (occurrence: None)
  Receive Date: 20051025
  Receipt Date: 20050325
  Transmission Date: 20060501
  Serious: Yes (Death)
  Sender: FDA-Public Use
  Company Number: US-GLAXOSMITHKLINE-A0551980A

PATIENT
  Age: 33 Year
  Sex: Male

DRUGS (2)
  1. PAXIL [Suspect]
     Indication: ANXIETY
     Dosage: 20MG PER DAY
     Route: 048
     Dates: start: 20020403
  2. AMBIEN [Concomitant]

REACTIONS (8)
  - AGITATION [None]
  - AKATHISIA [None]
  - COMPLETED SUICIDE [None]
  - CONFUSIONAL STATE [None]
  - IMPATIENCE [None]
  - INSOMNIA [None]
  - INTENTIONAL SELF-INJURY [None]
  - RESTLESSNESS [None]
